FAERS Safety Report 10964966 (Version 1)
Quarter: 2015Q1

REPORT INFORMATION
  Report Type: Spontaneous
  Country: JP (occurrence: JP)
  Receive Date: 20150330
  Receipt Date: 20150330
  Transmission Date: 20150721
  Serious: Yes (Other)
  Sender: FDA-Public Use
  Company Number: JP-BEH-2015049885

PATIENT
  Age: 37 Year
  Sex: Female

DRUGS (1)
  1. SANGLOPOR [Suspect]
     Active Substance: HUMAN IMMUNOGLOBULIN G
     Indication: ABORTION SPONTANEOUS
     Dosage: TOTAL 60G
     Route: 042

REACTIONS (2)
  - Maternal exposure during pregnancy [Recovered/Resolved]
  - Abortion spontaneous [Recovered/Resolved]
